FAERS Safety Report 8021109 (Version 2)
Quarter: 2013Q3

REPORT INFORMATION
  Report Type: Report from Study
  Country: DE (occurrence: DE)
  Receive Date: 20110705
  Receipt Date: 20130725
  Transmission Date: 20140515
  Serious: Yes (Hospitalization)
  Sender: FDA-Public Use
  Company Number: DE-ROCHE-784761

PATIENT
  Age: 73 Year
  Sex: Female
  Weight: 47.5 kg

DRUGS (7)
  1. IRINOTECAN [Suspect]
     Indication: COLORECTAL CANCER METASTATIC
     Dosage: LAST DOSE PRIOR TO SAE: 03 JUNE 2011.
     Route: 042
  2. IRINOTECAN [Suspect]
     Route: 042
  3. CAPECITABINE [Suspect]
     Indication: COLORECTAL CANCER METASTATIC
     Dosage: LAST DOES PRIOR TO SAE 14 JUNE 2011
     Route: 048
     Dates: start: 20110321
  4. CAPECITABINE [Suspect]
     Route: 048
     Dates: start: 20110711
  5. BEVACIZUMAB [Suspect]
     Indication: COLORECTAL CANCER METASTATIC
     Dosage: LAST DOSE PRIOR TO SAE: 03 JUNE 2011
     Route: 042
     Dates: start: 20110321
  6. BEVACIZUMAB [Suspect]
     Route: 042
     Dates: start: 20110711
  7. LOPEDIUM [Concomitant]
     Dosage: TOTAL DAILY DOSE: 4 CAPSULES
     Route: 065
     Dates: start: 20110630, end: 20110630

REACTIONS (1)
  - General physical health deterioration [Recovered/Resolved]
